FAERS Safety Report 7086574-3 (Version None)
Quarter: 2010Q4

REPORT INFORMATION
  Report Type: 
  Country: None (occurrence: None)
  Receive Date: 20101105
  Receipt Date: 20101025
  Transmission Date: 20110411
  Serious: Yes (Hospitalization)
  Sender: FDA-Public Use
  Company Number: PHHO2010US16699

PATIENT
  Sex: Male
  Weight: 69.7 kg

DRUGS (14)
  1. AFINITOR [Suspect]
     Indication: METASTATIC RENAL CELL CARCINOMA
     Dosage: 10 MG DAILY
     Route: 048
     Dates: start: 20091207, end: 20101022
  2. ALPHAGAN [Concomitant]
  3. TUMS E-X [Concomitant]
  4. KAYEXALATE [Concomitant]
  5. LISINOPRIL [Concomitant]
  6. MAGNESIUM OXIDE [Concomitant]
  7. METOPROLOL TARTRATE [Concomitant]
  8. NORVASC [Concomitant]
  9. OLANZAPINE [Concomitant]
  10. OMEPRAZOLE [Concomitant]
  11. SYNTHROID [Concomitant]
  12. TRICOR [Concomitant]
  13. VITAMIN D3 [Concomitant]
  14. XALATAN [Concomitant]

REACTIONS (9)
  - FATIGUE [None]
  - GASTROENTERITIS VIRAL [None]
  - HYPOPHAGIA [None]
  - HYPOVOLAEMIA [None]
  - INTESTINAL OBSTRUCTION [None]
  - NAUSEA [None]
  - RENAL FAILURE ACUTE [None]
  - URINE OUTPUT DECREASED [None]
  - VOMITING [None]
